FAERS Safety Report 9377914 (Version 1)
Quarter: 2013Q3

REPORT INFORMATION
  Report Type: Spontaneous
  Country: FR (occurrence: FR)
  Receive Date: 20130701
  Receipt Date: 20130701
  Transmission Date: 20140515
  Serious: Yes (Hospitalization)
  Sender: FDA-Public Use
  Company Number: FR-BAXTER-2013BAX023634

PATIENT
  Age: 43 Year
  Sex: Female

DRUGS (3)
  1. ENDOXAN 2000 MG, LYOPHILISAT POUR SOLUTION INJECTABLE [Suspect]
     Indication: BREAST SARCOMA
     Route: 042
     Dates: start: 20130603, end: 20130603
  2. CISPLATINE [Suspect]
     Indication: BREAST SARCOMA
     Route: 065
     Dates: start: 20130603, end: 20130607
  3. HERCEPTIN [Suspect]
     Indication: BREAST SARCOMA
     Route: 065
     Dates: start: 20130603, end: 20130607

REACTIONS (1)
  - Pancreatitis acute [Unknown]
